FAERS Safety Report 16809340 (Version 1)
Quarter: 2019Q3

REPORT INFORMATION
  Report Type: Report from Study
  Country: NL (occurrence: NL)
  Receive Date: 20190916
  Receipt Date: 20190916
  Transmission Date: 20191005
  Serious: Yes (Hospitalization)
  Sender: FDA-Public Use
  Company Number: PHHY2019NL212195

PATIENT
  Sex: Female

DRUGS (2)
  1. SIGNIFOR [Suspect]
     Active Substance: PASIREOTIDE
     Indication: PITUITARY-DEPENDENT CUSHING^S SYNDROME
     Dosage: UNK
     Route: 030
     Dates: start: 20160622
  2. SIGNIFOR [Suspect]
     Active Substance: PASIREOTIDE
     Dosage: 60 MG/2 ML, QMO
     Route: 030
     Dates: start: 20190814

REACTIONS (1)
  - Transient ischaemic attack [Unknown]
